FAERS Safety Report 4964414-3 (Version None)
Quarter: 2006Q2

REPORT INFORMATION
  Report Type: 
  Country: None (occurrence: None)
  Receive Date: 20060406
  Receipt Date: 20060331
  Transmission Date: 20061013
  Serious: Yes (Hospitalization)
  Sender: FDA-Public Use
  Company Number: AU-AVENTIS-200613424GDDC

PATIENT
  Age: 72 Year
  Sex: Male

DRUGS (4)
  1. ARAVA [Suspect]
     Indication: RHEUMATOID ARTHRITIS
     Route: 048
     Dates: start: 20010404
  2. CELECOXIB [Concomitant]
     Dosage: DOSE: UNK
  3. PREDNISOLONE [Concomitant]
  4. METHOTREXATE [Concomitant]
     Dosage: DOSE: UNK

REACTIONS (2)
  - PNEUMONIA [None]
  - PULMONARY EMBOLISM [None]
